FAERS Safety Report 9313025 (Version 1)
Quarter: 2013Q2

REPORT INFORMATION
  Report Type: Spontaneous
  Country: US (occurrence: US)
  Receive Date: 20130528
  Receipt Date: 20130528
  Transmission Date: 20140414
  Serious: No
  Sender: FDA-Public Use
  Company Number: US-ABBOTT-13P-163-1074059-00

PATIENT
  Age: 49 Year
  Sex: Male
  Weight: 87.17 kg

DRUGS (4)
  1. ANDROGEL [Suspect]
     Indication: BLOOD TESTOSTERONE DECREASED
     Dosage: 2 PUMPS FOR ABOUT A WEEK
     Route: 061
     Dates: start: 20130301
  2. ANDROGEL [Suspect]
     Dosage: 3 PUMPS FOR ONE TO TWO DAYS
  3. ANDROGEL [Suspect]
     Dosage: 4 PUMPS FOR THE PAST THREE WEEKS
  4. TERBINAFINE [Concomitant]
     Indication: ONYCHOMYCOSIS
     Dates: start: 20130301

REACTIONS (2)
  - Drug administered at inappropriate site [Recovered/Resolved]
  - Asthenia [Not Recovered/Not Resolved]
